FAERS Safety Report 13193130 (Version 4)
Quarter: 2017Q2

REPORT INFORMATION
  Report Type: Spontaneous
  Country: JP (occurrence: JP)
  Receive Date: 20170207
  Receipt Date: 20170410
  Transmission Date: 20170830
  Serious: Yes (Life-Threatening, Hospitalization, Disabling, Other)
  Sender: FDA-Public Use
  Company Number: JP-JNJFOC-20170204356

PATIENT
  Age: 66 Year
  Sex: Male
  Weight: 61 kg

DRUGS (4)
  1. DOCETAXEL. [Suspect]
     Active Substance: DOCETAXEL
     Indication: HORMONE-REFRACTORY PROSTATE CANCER
     Route: 041
     Dates: start: 20170123, end: 20170123
  2. ZYTIGA [Suspect]
     Active Substance: ABIRATERONE ACETATE
     Indication: HORMONE-REFRACTORY PROSTATE CANCER
     Route: 048
     Dates: start: 20160615, end: 20170125
  3. PREDNISOLONE. [Suspect]
     Active Substance: PREDNISOLONE
     Indication: HORMONE-REFRACTORY PROSTATE CANCER
     Route: 048
     Dates: start: 20160615, end: 20170127
  4. GONAX [Concomitant]
     Active Substance: DEGARELIX
     Route: 058
     Dates: start: 20150529

REACTIONS (5)
  - Peritonitis [Recovered/Resolved]
  - Prostate cancer [Unknown]
  - Rectal perforation [Not Recovered/Not Resolved]
  - Ileus [Not Recovered/Not Resolved]
  - Drug ineffective [Unknown]

NARRATIVE: CASE EVENT DATE: 20170123
